FAERS Safety Report 16061607 (Version 10)
Quarter: 2021Q1

REPORT INFORMATION
  Report Type: Spontaneous
  Country: US (occurrence: US)
  Receive Date: 20190312
  Receipt Date: 20210111
  Transmission Date: 20210419
  Serious: No
  Sender: FDA-Public Use
  Company Number: US-PFIZER INC-2016528562

PATIENT
  Age: 57 Year
  Sex: Male
  Weight: 81.63 kg

DRUGS (11)
  1. SKELAXIN [Suspect]
     Active Substance: METAXALONE
     Indication: STENOSIS
     Dosage: UNK
  2. SKELAXIN [Suspect]
     Active Substance: METAXALONE
     Indication: INTERVERTEBRAL DISC PROTRUSION
  3. SKELAXIN [Suspect]
     Active Substance: METAXALONE
     Indication: ARTHRITIS
  4. SKELAXIN [Suspect]
     Active Substance: METAXALONE
     Indication: INTERVERTEBRAL DISC DEGENERATION
  5. SKELAXIN [Suspect]
     Active Substance: METAXALONE
     Indication: MUSCULOSKELETAL DISCOMFORT
     Dosage: 800 MG, TWICE A DAY
     Route: 048
     Dates: start: 20150316
  6. SKELAXIN [Suspect]
     Active Substance: METAXALONE
     Indication: MUSCLE RELAXANT THERAPY
     Dosage: UNK
     Dates: start: 2003
  7. PERCOCET [Concomitant]
     Active Substance: ACETAMINOPHEN\OXYCODONE HYDROCHLORIDE
     Indication: PAIN
     Dosage: 7.5 MG, 3X/DAY (IN THE MORNING, AFTERNOON, AND EVENING)
     Route: 048
  8. SKELAXIN [Suspect]
     Active Substance: METAXALONE
     Indication: SCIATICA
  9. SKELAXIN [Suspect]
     Active Substance: METAXALONE
     Indication: INTERVERTEBRAL DISC PROTRUSION
  10. SKELAXIN [Suspect]
     Active Substance: METAXALONE
     Indication: OPEN FRACTURE
     Dosage: UNK
  11. SKELAXIN [Suspect]
     Active Substance: METAXALONE
     Indication: COMPRESSION FRACTURE
     Dosage: 2 DF, 2X/DAY (2 TABLETS A DAY, ONE IN THE MORNING AND ONE AT SUPPER)
     Route: 048

REACTIONS (2)
  - Movement disorder [Not Recovered/Not Resolved]
  - Finger deformity [Unknown]
